FAERS Safety Report 13604886 (Version 1)
Quarter: 2017Q2

REPORT INFORMATION
  Report Type: Spontaneous
  Country: US (occurrence: US)
  Receive Date: 20170601
  Receipt Date: 20170601
  Transmission Date: 20170830
  Serious: No
  Sender: FDA-Public Use
  Company Number: None

PATIENT
  Sex: Male

DRUGS (1)
  1. HARVONI [Suspect]
     Active Substance: LEDIPASVIR\SOFOSBUVIR
     Indication: CHRONIC HEPATITIS
     Dosage: 90/400 MG ONCE DAILY BY MOUTH
     Route: 048
     Dates: start: 20170510

REACTIONS (3)
  - Pruritus [None]
  - Headache [None]
  - Vomiting [None]
